FAERS Safety Report 4611720-8 (Version None)
Quarter: 2005Q2

REPORT INFORMATION
  Report Type: 
  Country: None (occurrence: None)
  Receive Date: 20050311
  Receipt Date: 20041216
  Transmission Date: 20051028
  Serious: No
  Sender: FDA-Public Use
  Company Number: 2004-BP-10116BP

PATIENT
  Age: 77 Year
  Sex: Male
  Weight: 76.2 kg

DRUGS (10)
  1. SPIRIVA [Suspect]
     Indication: CHRONIC OBSTRUCTIVE PULMONARY DISEASE
     Dosage: 36 MCG (18 MCG, 1 PUFF BID), IH
     Route: 055
  2. .................. [Concomitant]
  3. ALBUTEROL SULFATE [Concomitant]
  4. DIGOXIN [Concomitant]
  5. METOPROLOL TARTRATE [Concomitant]
  6. ENALAPRIL MALEATE [Concomitant]
  7. ACIPHEX [Concomitant]
  8. NORVAC (AMLODIPINE BESILATE) [Concomitant]
  9. TIMOLOL MALEATE [Concomitant]
  10. LUMIGAN [Concomitant]

REACTIONS (3)
  - AGEUSIA [None]
  - BREATH SOUNDS DECREASED [None]
  - CHEST DISCOMFORT [None]
